FAERS Safety Report 20255083 (Version 1)
Quarter: 2021Q4

REPORT INFORMATION
  Report Type: Spontaneous
  Country: CN (occurrence: CN)
  Receive Date: 20211230
  Receipt Date: 20211230
  Transmission Date: 20220303
  Serious: Yes (Hospitalization, Other)
  Sender: FDA-Public Use
  Company Number: CN-BRISTOL-MYERS SQUIBB COMPANY-BMS-2021-139909

PATIENT
  Age: 45 Year
  Sex: Female
  Weight: 45 kg

DRUGS (8)
  1. OPDIVO [Suspect]
     Active Substance: NIVOLUMAB
     Indication: Gastric cancer
     Dosage: 140 MILLIGRAM, ONE TIME DOSE
     Route: 041
     Dates: start: 20210924
  2. OPDIVO [Suspect]
     Active Substance: NIVOLUMAB
     Dosage: UNK
     Route: 041
     Dates: start: 20211009
  3. OPDIVO [Suspect]
     Active Substance: NIVOLUMAB
     Dosage: UNK
     Route: 041
     Dates: start: 20211022
  4. OPDIVO [Suspect]
     Active Substance: NIVOLUMAB
     Dosage: 140 MILLIGRAM
     Route: 041
     Dates: start: 20211109, end: 20211109
  5. OXALIPLATIN [Suspect]
     Active Substance: OXALIPLATIN
     Indication: Gastric cancer
     Dosage: 90MG IVD D1
     Route: 041
     Dates: start: 20211109, end: 20211109
  6. FLUOROURACIL [Suspect]
     Active Substance: FLUOROURACIL
     Indication: Gastric cancer
     Dosage: 0.4 G IVD D1
     Route: 041
     Dates: start: 20211109, end: 20211109
  7. FLUOROURACIL [Suspect]
     Active Substance: FLUOROURACIL
     Dosage: 2.5G IVD D2-3
     Route: 041
     Dates: start: 20211110, end: 20211111
  8. LEUCOVORIN CALCIUM [Suspect]
     Active Substance: LEUCOVORIN CALCIUM
     Indication: Gastric cancer
     Dosage: 0.6G IVD D1
     Route: 041
     Dates: start: 20211109, end: 20211109

REACTIONS (2)
  - Myelosuppression [Recovering/Resolving]
  - Intentional product use issue [Unknown]

NARRATIVE: CASE EVENT DATE: 20211122
